FAERS Safety Report 22054736 (Version 2)
Quarter: 2023Q2

REPORT INFORMATION
  Report Type: Spontaneous
  Country: US (occurrence: US)
  Receive Date: 20230302
  Receipt Date: 20230406
  Transmission Date: 20230722
  Serious: Yes (Hospitalization)
  Sender: FDA-Public Use
  Company Number: US-SA-SAC20230302000016

PATIENT
  Age: 67 Year
  Sex: Male

DRUGS (6)
  1. OXALIPLATIN [Suspect]
     Active Substance: OXALIPLATIN
     Indication: Oesophageal adenocarcinoma
     Dosage: 70 MILLIGRAM/SQ. METER, DAY 1, INTRAVENOUS USE
     Route: 042
     Dates: start: 20221205
  2. OXALIPLATIN [Suspect]
     Active Substance: OXALIPLATIN
     Dosage: 117.5 MG/M2
     Dates: start: 20230214, end: 20230228
  3. LEUCOVORIN CALCIUM [Suspect]
     Active Substance: LEUCOVORIN CALCIUM
     Indication: Oesophageal adenocarcinoma
     Dosage: 400 MILLIGRAM/SQ. METER, DAY 1, Q14D, INTRAVENOUS USE
     Route: 042
     Dates: start: 20221205
  4. FLUOROURACIL [Suspect]
     Active Substance: FLUOROURACIL
     Indication: Oesophageal adenocarcinoma
     Dosage: 400 MILLIGRAM/SQ. METER, DAY 1, Q14D, INTRAVENOUS USE
     Route: 042
     Dates: start: 20221205, end: 20230215
  5. TISLELIZUMAB [Suspect]
     Active Substance: TISLELIZUMAB
     Indication: Oesophageal adenocarcinoma
     Dosage: 400 MILLIGRAM, INTRAVENOUS USE
     Route: 042
     Dates: start: 20221205
  6. DKN-01 [Suspect]
     Active Substance: DKN-01
     Indication: Oesophageal adenocarcinoma
     Dosage: 400 MILLIGRAM, INTRAVENOUS USE
     Route: 042
     Dates: start: 20221205

REACTIONS (1)
  - Pyrexia [Recovered/Resolved]

NARRATIVE: CASE EVENT DATE: 20230214
